FAERS Safety Report 16476297 (Version 3)
Quarter: 2019Q3

REPORT INFORMATION
  Report Type: Report from Study
  Country: US (occurrence: US)
  Receive Date: 20190626
  Receipt Date: 20190705
  Transmission Date: 20191004
  Serious: Yes (Hospitalization)
  Sender: FDA-Public Use
  Company Number: US-ROCHE-2343508

PATIENT
  Age: 49 Year
  Sex: Male
  Weight: 104 kg

DRUGS (7)
  1. ACYCLOVIR [ACICLOVIR] [Concomitant]
     Active Substance: ACYCLOVIR
     Route: 065
  2. VITAMIN D3 [Concomitant]
     Active Substance: CHOLECALCIFEROL
     Dosage: 50000 U
     Route: 048
  3. CAFFEINE. [Concomitant]
     Active Substance: CAFFEINE
     Route: 065
  4. VENETOCLAX. [Suspect]
     Active Substance: VENETOCLAX
     Indication: B-CELL LYMPHOMA
     Dosage: ON 12/JUN/2019, HE RECEIVED THE MOST RECENT DOSE (800 MG) OF VENETOCLAX (CYCLE 3 DAY 10) PRIOR TO AE
     Route: 048
     Dates: start: 20190506
  5. BENDAMUSTINE [Suspect]
     Active Substance: BENDAMUSTINE
     Indication: B-CELL LYMPHOMA
     Dosage: ON 04/JUN/2019, HE RECEIVED THE MOST RECENT DOSE (208 MG) OF OBINUTUZUMAB (CYCLE 3 DAY 2) PRIOR TO A
     Route: 042
     Dates: start: 20190410
  6. OBINUTUZUMAB. [Suspect]
     Active Substance: OBINUTUZUMAB
     Indication: B-CELL LYMPHOMA
     Dosage: ON 03/JUN/2019, HE RECEIVED THE MOST RECENT DOSE (1000 MG) OF OBINUTUZUMAB (CYCLE 3 DAY 1) PRIOR TO
     Route: 042
     Dates: start: 20190410
  7. IBUPROFEN. [Concomitant]
     Active Substance: IBUPROFEN
     Route: 048

REACTIONS (1)
  - Upper gastrointestinal haemorrhage [Recovered/Resolved]

NARRATIVE: CASE EVENT DATE: 20190619
